FAERS Safety Report 6609366-5 (Version None)
Quarter: 2010Q1

REPORT INFORMATION
  Report Type: 
  Country: None (occurrence: None)
  Receive Date: 20100302
  Receipt Date: 20100225
  Transmission Date: 20100710
  Serious: Yes (Hospitalization)
  Sender: FDA-Public Use
  Company Number: DE-BIOGENIDEC-2010BI006490

PATIENT
  Age: 74 Year
  Sex: Female
  Weight: 80 kg

DRUGS (2)
  1. AVONEX [Suspect]
     Indication: RELAPSING-REMITTING MULTIPLE SCLEROSIS
     Route: 030
     Dates: start: 20060623, end: 20100129
  2. AVONEX [Suspect]
     Route: 030
     Dates: start: 20100205

REACTIONS (5)
  - ANKLE FRACTURE [None]
  - DIZZINESS [None]
  - FALL [None]
  - TREMOR [None]
  - WRIST FRACTURE [None]
